FAERS Safety Report 12232744 (Version 1)
Quarter: 2016Q2

REPORT INFORMATION
  Report Type: Other
  Country: TR (occurrence: TR)
  Receive Date: 20160402
  Receipt Date: 20160402
  Transmission Date: 20160815
  Serious: Yes (Other)
  Sender: FDA-Public Use
  Company Number: TR-LUPIN PHARMACEUTICALS INC.-2016-00438

PATIENT
  Age: 9 Year
  Sex: Male

DRUGS (3)
  1. N-ACETYL CYSTEINE [Concomitant]
     Indication: PHARYNGITIS
     Route: 065
  2. CLARITHROMYCIN. [Suspect]
     Active Substance: CLARITHROMYCIN
     Indication: PHARYNGITIS
     Route: 065
  3. CEFIXIME. [Concomitant]
     Active Substance: CEFIXIME
     Indication: PHARYNGITIS
     Route: 065

REACTIONS (1)
  - Angioedema [Recovered/Resolved]
